FAERS Safety Report 6407869-X (Version None)
Quarter: 2009Q4

REPORT INFORMATION
  Report Type: 
  Country: None (occurrence: None)
  Receive Date: 20091020
  Receipt Date: 20091009
  Transmission Date: 20100525
  Serious: Yes (Other)
  Sender: FDA-Public Use
  Company Number: US-JNJCH-2009027088

PATIENT
  Age: 29 Year
  Sex: Female
  Weight: 65.8 kg

DRUGS (1)
  1. LISTERINE TOTAL CARE ANTICAVITY MOUTHWASH [Suspect]
     Indication: DENTAL DISORDER PROPHYLAXIS
     Dosage: TEXT:A LITTLE BIT ONCE
     Route: 061
     Dates: start: 20090925, end: 20090925

REACTIONS (4)
  - AGEUSIA [None]
  - APPLICATION SITE ANAESTHESIA [None]
  - APPLICATION SITE IRRITATION [None]
  - SPEECH DISORDER [None]
